FAERS Safety Report 7939087-8 (Version None)
Quarter: 2011Q4

REPORT INFORMATION
  Report Type: 
  Country: None (occurrence: None)
  Receive Date: 20111124
  Receipt Date: 20111121
  Transmission Date: 20120403
  Serious: No
  Sender: FDA-Public Use
  Company Number: US-PFIZER INC-2011156632

PATIENT
  Sex: Female
  Weight: 81.6 kg

DRUGS (9)
  1. METOPROLOL [Concomitant]
     Indication: HYPERTENSION
     Dosage: 50 MG, DAILY
  2. GENOTROPIN [Suspect]
     Dosage: 0.6 MG, 1X/DAY
     Dates: start: 20110101
  3. SERTRALINE [Concomitant]
     Indication: DEPRESSION
     Dosage: 100 MG, DAILY
  4. HYDROCHLOROTHIAZIDE [Concomitant]
     Indication: HYPERTENSION
     Dosage: 25 MG, DAILY
  5. LIPITOR [Concomitant]
     Dosage: 20 MG, DAILY
     Route: 048
  6. PRAMIPEXOLE [Concomitant]
     Indication: RESTLESS LEGS SYNDROME
     Dosage: 0.5 MG, 3X/DAY
  7. TRICOR [Concomitant]
     Dosage: 48 MG, DAILY
     Route: 048
  8. HYDROCORTISONE [Concomitant]
     Dosage: 10MG AT NOON AND 5MG AT NIGHT
  9. GENOTROPIN [Suspect]
     Indication: HYPOPITUITARISM
     Dosage: 0.4 MG, 1X/DAY
     Dates: start: 20110101

REACTIONS (3)
  - FATIGUE [None]
  - DRUG ADMINISTRATION ERROR [None]
  - DRUG INEFFECTIVE [None]
